FAERS Safety Report 7198000-4 (Version None)
Quarter: 2010Q4

REPORT INFORMATION
  Report Type: 
  Country: None (occurrence: None)
  Receive Date: 20101227
  Receipt Date: 20101220
  Transmission Date: 20110411
  Serious: Yes (Other)
  Sender: FDA-Public Use
  Company Number: CH-ROCHE-749278

PATIENT
  Age: 62 Year
  Sex: Male

DRUGS (1)
  1. OSELTAMIVIR [Suspect]
     Route: 065

REACTIONS (1)
  - DELIRIUM [None]
